FAERS Safety Report 4743331-8 (Version None)
Quarter: 2005Q3

REPORT INFORMATION
  Report Type: 
  Country: None (occurrence: None)
  Receive Date: 20050809
  Receipt Date: 20050801
  Transmission Date: 20060218
  Serious: Yes (Hospitalization, Other)
  Sender: FDA-Public Use
  Company Number: 200512315BCC

PATIENT
  Age: 76 Year
  Sex: Female
  Weight: 49.8957 kg

DRUGS (11)
  1. ASPIRIN [Suspect]
     Indication: ROUTINE HEALTH MAINTENANCE
     Dosage: SEE IMAGE
     Route: 048
     Dates: end: 20041101
  2. ASPIRIN [Suspect]
     Indication: ROUTINE HEALTH MAINTENANCE
     Dosage: SEE IMAGE
     Route: 048
     Dates: start: 20050501, end: 20050701
  3. ASPIRIN [Suspect]
     Indication: ROUTINE HEALTH MAINTENANCE
     Dosage: SEE IMAGE
     Route: 048
     Dates: start: 20050701
  4. DIOVAN [Concomitant]
  5. PLAVIX [Concomitant]
  6. ZOCOR [Concomitant]
  7. LASIX [Concomitant]
  8. AMIODARONE [Concomitant]
  9. ACIPHEX [Concomitant]
  10. POTASSIUM CHLORIDE [Concomitant]
  11. SPIRIVA [Concomitant]

REACTIONS (3)
  - ANAEMIA [None]
  - ARTERIAL OCCLUSIVE DISEASE [None]
  - GASTRIC ULCER HAEMORRHAGE [None]
